FAERS Safety Report 11369306 (Version 1)
Quarter: 2015Q3

REPORT INFORMATION
  Report Type: Spontaneous
  Country: US (occurrence: US)
  Receive Date: 20150812
  Receipt Date: 20150812
  Transmission Date: 20151125
  Serious: No
  Sender: FDA-Public Use
  Company Number: US-JNJFOC-20150402599

PATIENT
  Sex: Female
  Weight: 63.05 kg

DRUGS (1)
  1. STELARA [Suspect]
     Active Substance: USTEKINUMAB
     Indication: PSORIASIS
     Route: 058
     Dates: start: 2010

REACTIONS (4)
  - Rhinorrhoea [Not Recovered/Not Resolved]
  - Adverse event [Unknown]
  - Psoriasis [Unknown]
  - Alopecia [Not Recovered/Not Resolved]
